FAERS Safety Report 10729868 (Version 1)
Quarter: 2015Q1

REPORT INFORMATION
  Report Type: Spontaneous
  Country: US (occurrence: None)
  Receive Date: 20150120
  Receipt Date: 20150120
  Transmission Date: 20150721
  Serious: Yes (Life-Threatening, Hospitalization, Disabling)
  Sender: FDA-Public Use
  Company Number: None

PATIENT
  Age: 67 Year
  Sex: Male
  Weight: 72.58 kg

DRUGS (1)
  1. ELIQUIS [Suspect]
     Active Substance: APIXABAN
     Indication: ANTICOAGULANT THERAPY
     Dosage: 2 TABLETS
     Dates: start: 20141209, end: 20141221

REACTIONS (6)
  - Contusion [None]
  - Haemoglobin abnormal [None]
  - Drug interaction [None]
  - Epistaxis [None]
  - Haematocrit abnormal [None]
  - Platelet count decreased [None]

NARRATIVE: CASE EVENT DATE: 20141221
